FAERS Safety Report 19005279 (Version 2)
Quarter: 2021Q1

REPORT INFORMATION
  Report Type: Spontaneous
  Country: US (occurrence: US)
  Receive Date: 20210312
  Receipt Date: 20210319
  Transmission Date: 20210420
  Serious: Yes (Other)
  Sender: FDA-Public Use
  Company Number: US-BAXTER-2021BAX004685

PATIENT
  Sex: Male

DRUGS (1)
  1. NEXTERONE [Suspect]
     Active Substance: AMIODARONE HYDROCHLORIDE
     Indication: PRODUCT USED FOR UNKNOWN INDICATION
     Dosage: VIA PERIPHERAL ROUTE
     Route: 042
     Dates: start: 20210304

REACTIONS (2)
  - Infusion site extravasation [Unknown]
  - Cellulitis [Unknown]

NARRATIVE: CASE EVENT DATE: 20210304
